FAERS Safety Report 20580066 (Version 2)
Quarter: 2022Q1

REPORT INFORMATION
  Report Type: Spontaneous
  Country: JP (occurrence: JP)
  Receive Date: 20220310
  Receipt Date: 20220331
  Transmission Date: 20220423
  Serious: Yes (Other)
  Sender: FDA-Public Use
  Company Number: JP-JNJFOC-20220246381

PATIENT
  Age: 3 Decade
  Sex: Female

DRUGS (8)
  1. OPSUMIT [Suspect]
     Active Substance: MACITENTAN
     Indication: Portopulmonary hypertension
     Route: 048
     Dates: start: 20200917
  2. TADALAFIL [Suspect]
     Active Substance: TADALAFIL
     Indication: Portopulmonary hypertension
     Route: 048
     Dates: start: 20200928, end: 20200930
  3. TADALAFIL [Suspect]
     Active Substance: TADALAFIL
     Route: 048
     Dates: start: 20201001
  4. MAGNESIUM OXIDE [Concomitant]
     Active Substance: MAGNESIUM OXIDE
     Route: 048
     Dates: start: 20201019
  5. PURSENNID [SENNA ALEXANDRINA LEAF] [Concomitant]
     Route: 048
     Dates: start: 20201118
  6. SODIUM PICOSULFATE [Concomitant]
     Active Substance: SODIUM PICOSULFATE
     Route: 048
     Dates: start: 20210329
  7. MOVICOL [Concomitant]
     Active Substance: POLYETHYLENE GLYCOL 3350\POTASSIUM CHLORIDE\SODIUM BICARBONATE\SODIUM CHLORIDE
     Dosage: 2 PACKETS
     Route: 048
     Dates: start: 20210426
  8. LACTULOSE [Concomitant]
     Active Substance: LACTULOSE
     Route: 048
     Dates: start: 20210628

REACTIONS (5)
  - Pulmonary congestion [Recovering/Resolving]
  - Hypoxia [Recovering/Resolving]
  - Cardiac output increased [Recovering/Resolving]
  - Headache [Recovering/Resolving]
  - Anaemia [Recovered/Resolved]

NARRATIVE: CASE EVENT DATE: 20200918
